FAERS Safety Report 18415600 (Version 3)
Quarter: 2020Q4

REPORT INFORMATION
  Report Type: Spontaneous
  Country: IN (occurrence: IN)
  Receive Date: 20201022
  Receipt Date: 20201222
  Transmission Date: 20210114
  Serious: Yes (Other)
  Sender: FDA-Public Use
  Company Number: IN-PFIZER INC-2019355594

PATIENT
  Age: 80 Year
  Sex: Female

DRUGS (3)
  1. PALBACE [Suspect]
     Active Substance: PALBOCICLIB
     Indication: BREAST CANCER METASTATIC
     Dosage: 125 MG, 1X/DAY
     Route: 048
     Dates: start: 20170527
  2. PALBACE [Suspect]
     Active Substance: PALBOCICLIB
     Dosage: 75 MG
  3. ARIMIDEX [Concomitant]
     Active Substance: ANASTROZOLE
     Dosage: 1 MG
     Dates: start: 2016

REACTIONS (6)
  - Cerebrovascular accident [Unknown]
  - Hypercalcaemia [Unknown]
  - Renal impairment [Unknown]
  - Blood parathyroid hormone increased [Unknown]
  - Neoplasm progression [Unknown]
  - Off label use [Unknown]
